FAERS Safety Report 4834475-0 (Version None)
Quarter: 2005Q4

REPORT INFORMATION
  Report Type: 
  Country: None (occurrence: None)
  Receive Date: 20051122
  Receipt Date: 20041215
  Transmission Date: 20060501
  Serious: No
  Sender: FDA-Public Use
  Company Number: US-BRISTOL-MYERS SQUIBB COMPANY-12796314

PATIENT
  Age: 63 Year
  Sex: Female
  Weight: 132 kg

DRUGS (7)
  1. PRAVACHOL [Suspect]
     Indication: CEREBROVASCULAR ACCIDENT
     Route: 048
  2. GLYBURIDE [Concomitant]
     Route: 048
  3. HYDROCHLOROTHIAZIDE [Concomitant]
     Route: 048
  4. CARDIZEM CD [Concomitant]
     Route: 048
  5. POTASSIUM CHLORIDE [Concomitant]
     Route: 048
  6. OS-CAL [Concomitant]
     Route: 048
  7. WARFARIN [Concomitant]
     Dosage: 5 MG THEN 4 MG ON ALTERNATING DAYS
     Route: 048

REACTIONS (2)
  - MUSCULAR WEAKNESS [None]
  - URINARY TRACT INFECTION [None]
